FAERS Safety Report 17803495 (Version 2)
Quarter: 2020Q2

REPORT INFORMATION
  Report Type: Spontaneous
  Country: US (occurrence: US)
  Receive Date: 20200519
  Receipt Date: 20200519
  Transmission Date: 20200714
  Serious: Yes (Other)
  Sender: FDA-Public Use
  Company Number: NVSC2020US130265

PATIENT
  Age: 29 Year
  Sex: Male

DRUGS (1)
  1. CLOBETASOL [Suspect]
     Active Substance: CLOBETASOL
     Indication: DERMATITIS
     Dosage: UNK
     Route: 065

REACTIONS (9)
  - Odynophagia [Unknown]
  - Pustule [Unknown]
  - Rash [Unknown]
  - Pruritus [Unknown]
  - Condition aggravated [Unknown]
  - Product use in unapproved indication [Unknown]
  - Mucosal pain [Unknown]
  - Vision blurred [Unknown]
  - Xerophthalmia [Unknown]
